FAERS Safety Report 8209754-X (Version None)
Quarter: 2012Q1

REPORT INFORMATION
  Report Type: 
  Country: None (occurrence: None)
  Receive Date: 20120314
  Receipt Date: 20120301
  Transmission Date: 20120608
  Serious: Yes (Hospitalization, Other)
  Sender: FDA-Public Use
  Company Number: SK-ELI_LILLY_AND_COMPANY-SK201203000658

PATIENT
  Sex: Male
  Weight: 81 kg

DRUGS (3)
  1. OLANZAPINE [Suspect]
     Indication: SCHIZOPHRENIA, PARANOID TYPE
     Dosage: 300 MG, UNKNOWN
     Dates: start: 20120229
  2. ZYPREXA [Suspect]
     Dosage: 15 MG, UNKNOWN
     Route: 048
     Dates: start: 20120217, end: 20120228
  3. ALPRAZOLAM [Concomitant]
     Dosage: 1.5 MG, UNKNOWN
     Route: 048
     Dates: start: 20120225, end: 20120228

REACTIONS (11)
  - SEDATION [None]
  - ASTHENIA [None]
  - MYOCLONUS [None]
  - BLOOD CREATININE INCREASED [None]
  - ATAXIA [None]
  - EXTRAPYRAMIDAL DISORDER [None]
  - ANXIETY [None]
  - DIZZINESS [None]
  - BLOOD PRESSURE DIASTOLIC INCREASED [None]
  - DYSARTHRIA [None]
  - ASPARTATE AMINOTRANSFERASE INCREASED [None]
